FAERS Safety Report 7392931-8 (Version None)
Quarter: 2011Q2

REPORT INFORMATION
  Report Type: 
  Country: None (occurrence: None)
  Receive Date: 20110404
  Receipt Date: 20110325
  Transmission Date: 20111010
  Serious: Yes (Disabling, Other)
  Sender: FDA-Public Use
  Company Number: JP-ASTRAZENECA-2011SE11284

PATIENT
  Age: 27296 Day
  Sex: Female

DRUGS (16)
  1. IRESSA [Suspect]
     Indication: LUNG ADENOCARCINOMA
     Route: 048
     Dates: start: 20100605, end: 20100923
  2. IRESSA [Suspect]
     Route: 048
     Dates: start: 20100924, end: 20101209
  3. IRESSA [Suspect]
     Route: 048
     Dates: start: 20101210, end: 20110218
  4. RISPERDAL [Concomitant]
     Indication: SCHIZOPHRENIA
     Route: 048
  5. SENNAL [Concomitant]
     Indication: CONSTIPATION
     Route: 048
     Dates: start: 20100603
  6. LASIX [Concomitant]
     Indication: CARDIAC FAILURE
     Route: 048
  7. TOLEDOMIN [Concomitant]
     Indication: SCHIZOPHRENIA
     Route: 048
     Dates: start: 20070723
  8. DERMOVATE [Concomitant]
     Indication: ECZEMA
     Dosage: 5 G, 1-2 DOSAGES/DAY.
     Route: 003
     Dates: start: 20100709
  9. DEXALTIN [Concomitant]
     Indication: STOMATITIS
     Route: 003
     Dates: start: 20110107
  10. AKINETON [Concomitant]
     Indication: SCHIZOPHRENIA
     Route: 048
  11. RINDERON-V [Concomitant]
     Indication: SKIN DISORDER
     Dosage: 5 G, 1-2 DOSAGES/DAY.
     Route: 003
     Dates: start: 20100730
  12. MAGMITT [Concomitant]
     Indication: CONSTIPATION
     Route: 048
     Dates: start: 20110107
  13. ABILIFY [Concomitant]
     Indication: SCHIZOPHRENIA
     Route: 048
     Dates: start: 20100401
  14. HIRUDOID [Concomitant]
     Indication: SKIN DISORDER
     Dosage: 25 MG, 1-2 DOSAGES/DAY.
     Route: 003
     Dates: start: 20100730
  15. COROHERSER-R [Concomitant]
     Indication: ANGINA PECTORIS
     Route: 048
  16. RIVOTRIL [Concomitant]
     Indication: SCHIZOPHRENIA
     Route: 048
     Dates: start: 20061218

REACTIONS (3)
  - INTERSTITIAL LUNG DISEASE [None]
  - DECREASED APPETITE [None]
  - SKIN DISORDER [None]
